FAERS Safety Report 15234721 (Version 2)
Quarter: 2018Q3

REPORT INFORMATION
  Report Type: Spontaneous
  Country: CA (occurrence: CA)
  Receive Date: 20180803
  Receipt Date: 20180807
  Transmission Date: 20181010
  Serious: Yes (Other)
  Sender: FDA-Public Use
  Company Number: CA-ROCHE-2160931

PATIENT
  Age: 41 Year
  Sex: Female

DRUGS (2)
  1. SOLU?MEDROL [Suspect]
     Active Substance: METHYLPREDNISOLONE SODIUM SUCCINATE
     Indication: PRODUCT USED FOR UNKNOWN INDICATION
     Route: 042
  2. RITUXAN [Suspect]
     Active Substance: RITUXIMAB
     Indication: PRODUCT USED FOR UNKNOWN INDICATION
     Route: 065

REACTIONS (7)
  - Therapy non-responder [Unknown]
  - Joint swelling [Unknown]
  - Arthritis [Not Recovered/Not Resolved]
  - Synovitis [Unknown]
  - Rheumatoid factor positive [Unknown]
  - Lymphocyte count increased [Unknown]
  - Lividity [Unknown]

NARRATIVE: CASE EVENT DATE: 201706
